FAERS Safety Report 6082650-2 (Version None)
Quarter: 2009Q1

REPORT INFORMATION
  Report Type: 
  Country: None (occurrence: None)
  Receive Date: 20090218
  Receipt Date: 20090213
  Transmission Date: 20090719
  Serious: Yes (Death)
  Sender: FDA-Public Use
  Company Number: US-BAYER-200910170BCC

PATIENT
  Age: 73 Year
  Sex: Female

DRUGS (3)
  1. ALEVE [Suspect]
     Indication: CANCER PAIN
     Dosage: TOTAL DAILY DOSE: 220 MG  UNIT DOSE: 220 MG
  2. OXYCODONE HCL [Suspect]
     Indication: CANCER PAIN
  3. OXYCODONE HCL [Concomitant]

REACTIONS (1)
  - HAEMORRHAGE [None]
